FAERS Safety Report 12763294 (Version 1)
Quarter: 2016Q3

REPORT INFORMATION
  Report Type: Spontaneous
  Country: US (occurrence: US)
  Receive Date: 20160920
  Receipt Date: 20160920
  Transmission Date: 20161109
  Serious: Yes (Other)
  Sender: FDA-Public Use
  Company Number: PHEH2016US022550

PATIENT
  Age: 7 Year
  Sex: Female
  Weight: 82 kg

DRUGS (1)
  1. ILARIS [Suspect]
     Active Substance: CANAKINUMAB
     Indication: JUVENILE IDIOPATHIC ARTHRITIS
     Dosage: 160 MG, UNK
     Route: 065

REACTIONS (1)
  - Juvenile idiopathic arthritis [Unknown]
